FAERS Safety Report 13753861 (Version 2)
Quarter: 2017Q3

REPORT INFORMATION
  Report Type: Spontaneous
  Country: KR (occurrence: KR)
  Receive Date: 20170714
  Receipt Date: 20170719
  Transmission Date: 20171127
  Serious: Yes (Other)
  Sender: FDA-Public Use
  Company Number: KR-009507513-1704KOR004350

PATIENT
  Age: 56 Year
  Sex: Female
  Weight: 78.4 kg

DRUGS (33)
  1. NAVELBINE [Concomitant]
     Active Substance: VINORELBINE TARTRATE
     Dosage: 45 MG, QD (INJECTED TWO TIMES AT DAY 1 AND DAY 8), CYCLE 2; STRENGTH: 50MG/5ML
     Route: 042
     Dates: start: 20170124, end: 20170201
  2. DEXAMETHASONE SODIUM PHOSPHATE. [Concomitant]
     Active Substance: DEXAMETHASONE SODIUM PHOSPHATE
     Dosage: 12 MG, ONCE; STRENGTH: 5MG/ML
     Route: 042
     Dates: start: 20170221, end: 20170221
  3. DEXAMETHASONE SODIUM PHOSPHATE. [Concomitant]
     Active Substance: DEXAMETHASONE SODIUM PHOSPHATE
     Dosage: 12 MG, ONCE; STRENGTH: 5MG/ML
     Route: 042
     Dates: start: 20170316, end: 20170316
  4. EMEND (FOSAPREPITANT DIMEGLUMINE) [Suspect]
     Active Substance: FOSAPREPITANT DIMEGLUMINE
     Indication: PROPHYLAXIS OF NAUSEA AND VOMITING
     Dosage: 150 MG, ONCE
     Route: 042
     Dates: start: 20161227, end: 20161227
  5. CISPLAN [Concomitant]
     Active Substance: CISPLATIN
     Indication: NON-SMALL CELL LUNG CANCER
     Dosage: 145 MG, ONCE, CYCLE 1; STRENGTH: 50MG/100ML
     Route: 042
     Dates: start: 20161227, end: 20161227
  6. DEXAMETHASONE. [Concomitant]
     Active Substance: DEXAMETHASONE
     Indication: PROPHYLAXIS
     Dosage: 8 MG, BID
     Route: 048
     Dates: start: 20161227, end: 20161228
  7. METOCLOPRAMIDE HYDROCHLORIDE. [Concomitant]
     Active Substance: METOCLOPRAMIDE HYDROCHLORIDE
     Indication: PROPHYLAXIS
     Dosage: 5 MG (1 TABLET), TID
     Route: 048
     Dates: start: 20161227, end: 20170321
  8. DEXAMETHASONE SODIUM PHOSPHATE. [Concomitant]
     Active Substance: DEXAMETHASONE SODIUM PHOSPHATE
     Dosage: 12 MG, ONCE; STRENGTH: 5MG/ML
     Route: 042
     Dates: start: 20170124, end: 20170124
  9. DEXAMETHASONE. [Concomitant]
     Active Substance: DEXAMETHASONE
     Dosage: 8 MG, QD
     Route: 048
     Dates: start: 20170125, end: 20170127
  10. ALOXI [Concomitant]
     Active Substance: PALONOSETRON HYDROCHLORIDE
     Indication: PROPHYLAXIS
     Dosage: 5 ML, ONCE
     Route: 042
     Dates: start: 20170124, end: 20170124
  11. FAMOTIDINE. [Concomitant]
     Active Substance: FAMOTIDINE
     Indication: PROPHYLAXIS
     Dosage: 20 MG (1 TABLET), BID; AFTER EVERY CHEMOTHERAPY FOR 3 DAYS
     Route: 048
     Dates: start: 20170124, end: 20170319
  12. EMEND (FOSAPREPITANT DIMEGLUMINE) [Suspect]
     Active Substance: FOSAPREPITANT DIMEGLUMINE
     Dosage: 150 MG, ONCE
     Route: 042
     Dates: start: 20170221, end: 20170221
  13. EMEND (FOSAPREPITANT DIMEGLUMINE) [Suspect]
     Active Substance: FOSAPREPITANT DIMEGLUMINE
     Dosage: 150 MG, ONCE
     Route: 042
     Dates: start: 20170316, end: 20170316
  14. NAVELBINE [Concomitant]
     Active Substance: VINORELBINE TARTRATE
     Indication: NON-SMALL CELL LUNG CANCER
     Dosage: 45 MG, QD (INJECTED TWO TIMES AT DAY 1 AND DAY 8), CYCLE 1; STRENGTH: 50MG/5ML
     Route: 042
     Dates: start: 20161227, end: 20170103
  15. NAVELBINE [Concomitant]
     Active Substance: VINORELBINE TARTRATE
     Dosage: 45 MG, QD (INJECTED TWO TIMES AT DAY 1 AND DAY 8), CYCLE 4; STRENGTH: 50MG/5ML
     Route: 042
     Dates: start: 20170316, end: 20170323
  16. DEXAMETHASONE. [Concomitant]
     Active Substance: DEXAMETHASONE
     Dosage: 8 MG, QD
     Route: 048
     Dates: start: 20170222, end: 20170224
  17. OCODONE [Concomitant]
     Indication: PAIN
     Dosage: 5 MG (1 TABLET), TID
     Route: 048
     Dates: start: 20170117, end: 20170124
  18. DEXAMETHASONE. [Concomitant]
     Active Substance: DEXAMETHASONE
     Dosage: 8 MG, QD
     Route: 048
     Dates: start: 20170317, end: 20170319
  19. ALOXI [Concomitant]
     Active Substance: PALONOSETRON HYDROCHLORIDE
     Indication: PREMEDICATION
     Dosage: 5 ML, ONCE
     Route: 042
     Dates: start: 20161227, end: 20161227
  20. ALOXI [Concomitant]
     Active Substance: PALONOSETRON HYDROCHLORIDE
     Dosage: 5 ML, ONCE
     Route: 042
     Dates: start: 20170316, end: 20170316
  21. MONILAC [Concomitant]
     Active Substance: LACTULOSE
     Indication: CONSTIPATION PROPHYLAXIS
     Dosage: 20 ML, TID
     Route: 048
     Dates: start: 20170117, end: 20170303
  22. SOLETON [Concomitant]
     Active Substance: ZALTOPROFEN
     Indication: PAIN
     Dosage: 80 MG (1 TABLET), QD
     Route: 048
  23. CISPLAN [Concomitant]
     Active Substance: CISPLATIN
     Dosage: 145 MG, ONCE, CYCLE 4; STRENGTH: 50MG/100ML
     Route: 042
     Dates: start: 20170316, end: 20170316
  24. DEXAMETHASONE SODIUM PHOSPHATE. [Concomitant]
     Active Substance: DEXAMETHASONE SODIUM PHOSPHATE
     Indication: PREMEDICATION
     Dosage: 12 MG, ONCE; STRENGTH: 5MG/ML
     Route: 042
     Dates: start: 20161227, end: 20161227
  25. STABLON [Concomitant]
     Active Substance: TIANEPTINE
     Indication: DEPRESSION
     Dosage: 12.5 MG (1 TABLET), QD
     Route: 048
  26. CISPLAN [Concomitant]
     Active Substance: CISPLATIN
     Dosage: 145 MG, ONCE, CYCLE 2; STRENGTH: 50MG/100ML
     Route: 042
     Dates: start: 20170124, end: 20170124
  27. CISPLAN [Concomitant]
     Active Substance: CISPLATIN
     Dosage: 145 MG, ONCE, CYCLE 3; STRENGTH: 50MG/100ML
     Route: 042
     Dates: start: 20170221, end: 20170221
  28. ALOXI [Concomitant]
     Active Substance: PALONOSETRON HYDROCHLORIDE
     Dosage: 5 ML, ONCE
     Route: 042
     Dates: start: 20170221, end: 20170221
  29. DUPHALAC [Concomitant]
     Active Substance: LACTULOSE
     Indication: CONSTIPATION PROPHYLAXIS
     Dosage: 1 PK, TID
     Route: 048
     Dates: start: 20170109, end: 20170123
  30. EMEND (FOSAPREPITANT DIMEGLUMINE) [Suspect]
     Active Substance: FOSAPREPITANT DIMEGLUMINE
     Dosage: 150 MG, ONCE
     Route: 042
     Dates: start: 20170124, end: 20170124
  31. NAVELBINE [Concomitant]
     Active Substance: VINORELBINE TARTRATE
     Dosage: 45 MG, QD (INJECTED TWO TIMES AT DAY 1 AND DAY 8), CYCLE 3; STRENGTH: 50MG/5ML
     Route: 042
     Dates: start: 20170221, end: 20170228
  32. TARGIN [Concomitant]
     Active Substance: NALOXONE HYDROCHLORIDE\OXYCODONE HYDROCHLORIDE
     Indication: PAIN
     Dosage: 1 TABLET, BID
     Route: 048
     Dates: start: 20170117
  33. MECKOOL [Concomitant]
     Indication: GASTRITIS PROPHYLAXIS
     Dosage: 2 ML, QD; WAS INJECTED WITH CHEMOTHERAPY
     Route: 042
     Dates: start: 20161227, end: 20170316

REACTIONS (6)
  - Nausea [Recovered/Resolved]
  - Upper respiratory tract infection [Recovered/Resolved]
  - Neutrophil count increased [Unknown]
  - Therapeutic response decreased [Unknown]
  - Neutropenia [Recovered/Resolved]
  - Constipation [Recovered/Resolved]

NARRATIVE: CASE EVENT DATE: 20170201
